FAERS Safety Report 10332001 (Version 2)
Quarter: 2014Q3

REPORT INFORMATION
  Report Type: Spontaneous
  Country: IT (occurrence: IT)
  Receive Date: 20140722
  Receipt Date: 20140722
  Transmission Date: 20150326
  Serious: Yes (Other)
  Sender: FDA-Public Use
  Company Number: IT-BRISTOL-MYERS SQUIBB COMPANY-21045489

PATIENT
  Age: 67 Year
  Sex: Female

DRUGS (1)
  1. ERBITUX [Suspect]
     Active Substance: CETUXIMAB
     Indication: LARYNGEAL CANCER METASTATIC
     Dosage: 400MG WEEKLY ONCE
     Route: 042
     Dates: end: 20140509

REACTIONS (2)
  - Acne [Unknown]
  - Porphyria [Unknown]

NARRATIVE: CASE EVENT DATE: 20140419
